FAERS Safety Report 13807911 (Version 1)
Quarter: 2017Q3

REPORT INFORMATION
  Report Type: Spontaneous
  Country: FR (occurrence: FR)
  Receive Date: 20170728
  Receipt Date: 20170728
  Transmission Date: 20171127
  Serious: Yes (Hospitalization)
  Sender: FDA-Public Use
  Company Number: FR-SA-2017SA136641

PATIENT
  Age: 84 Year
  Sex: Female

DRUGS (7)
  1. MIRTAZAPINE. [Suspect]
     Active Substance: MIRTAZAPINE
     Dosage: 1 IN THE EVENING
     Route: 048
  2. OXYNORMORO [Suspect]
     Active Substance: OXYCODONE
     Indication: PAIN
     Route: 048
     Dates: end: 20161020
  3. STILNOX [Suspect]
     Active Substance: ZOLPIDEM TARTRATE
     Dosage: 10 MG, FILM COATED DIVISIBLE TABLET; 1 IN THE EVENING
     Route: 048
     Dates: end: 20161020
  4. NEURONTIN [Concomitant]
     Active Substance: GABAPENTIN
     Dosage: 1 DF, 1 IN 1 DAY (IN THE EVENING)
     Route: 048
  5. MIANSERIN HYDROCHLORIDE [Suspect]
     Active Substance: MIANSERIN HYDROCHLORIDE
     Route: 048
     Dates: end: 20161020
  6. PAROXETINE. [Suspect]
     Active Substance: PAROXETINE
     Dosage: 20 MG, FILM COATED DIVISIBLE TABLET, 1 DF, 1 IN 1 DAY
     Route: 048
     Dates: end: 20161020
  7. LYSANXIA [Suspect]
     Active Substance: PRAZEPAM
     Dosage: 10 MG, TABLET; 10 MG, 1 IN THE EVENING
     Route: 048
     Dates: end: 20161020

REACTIONS (2)
  - Dehydration [Recovered/Resolved]
  - Confusional state [Recovered/Resolved]

NARRATIVE: CASE EVENT DATE: 20161020
